FAERS Safety Report 8035109-7 (Version None)
Quarter: 2012Q1

REPORT INFORMATION
  Report Type: 
  Country: None (occurrence: None)
  Receive Date: 20120111
  Receipt Date: 20120104
  Transmission Date: 20120608
  Serious: Yes (Hospitalization)
  Sender: FDA-Public Use
  Company Number: US-BIOGENIDEC-2011BI042446

PATIENT
  Age: 59 Year
  Sex: Female

DRUGS (2)
  1. ANTICONVULSANT (NOS) [Concomitant]
  2. TYSABRI [Suspect]
     Indication: MULTIPLE SCLEROSIS
     Route: 042
     Dates: start: 20081003

REACTIONS (8)
  - CONCUSSION [None]
  - FALL [None]
  - POSTICTAL STATE [None]
  - BACK INJURY [None]
  - PAIN [None]
  - CONVULSION [None]
  - PSYCHOTIC DISORDER [None]
  - FACIAL BONES FRACTURE [None]
